FAERS Safety Report 7849576-2 (Version None)
Quarter: 2011Q4

REPORT INFORMATION
  Report Type: 
  Country: None (occurrence: None)
  Receive Date: 20111026
  Receipt Date: 20111018
  Transmission Date: 20120403
  Serious: No
  Sender: FDA-Public Use
  Company Number: US-JNJFOC-20111008679

PATIENT
  Sex: Male

DRUGS (1)
  1. FENTANYL-100 [Suspect]
     Indication: DYSTONIA
     Dosage: NDC-0781-7242-55
     Route: 062
     Dates: start: 20111001

REACTIONS (1)
  - WRONG TECHNIQUE IN DRUG USAGE PROCESS [None]
